FAERS Safety Report 18418219 (Version 1)
Quarter: 2020Q4

REPORT INFORMATION
  Report Type: Report from Study
  Country: None (occurrence: US)
  Receive Date: 20201023
  Receipt Date: 20201023
  Transmission Date: 20210114
  Serious: Yes (Hospitalization, Other)
  Sender: FDA-Public Use
  Company Number: US-BIOVITRUM-2020US4017

PATIENT
  Sex: Male

DRUGS (1)
  1. KINERET [Suspect]
     Active Substance: ANAKINRA
     Indication: RHEUMATOID ARTHRITIS
     Route: 058
     Dates: start: 20200625

REACTIONS (5)
  - Rectal haemorrhage [Unknown]
  - Weight decreased [Unknown]
  - Fungal infection [Unknown]
  - Product dose omission issue [Unknown]
  - Cholecystitis [Unknown]
